FAERS Safety Report 8060688-3 (Version None)
Quarter: 2012Q1

REPORT INFORMATION
  Report Type: 
  Country: None (occurrence: None)
  Receive Date: 20120120
  Receipt Date: 20120116
  Transmission Date: 20120608
  Serious: No
  Sender: FDA-Public Use
  Company Number: US-BAYER-2012-006444

PATIENT
  Sex: Female
  Weight: 72 kg

DRUGS (2)
  1. ALEVE (CAPLET) [Suspect]
     Indication: BACK PAIN
     Dosage: 2 TABLETS USED ONCE
     Route: 048
     Dates: start: 20120101, end: 20120101
  2. ACETYLSALICYLIC ACID SRT [Concomitant]
     Dosage: 2 TABLETS
     Route: 048

REACTIONS (1)
  - BACK PAIN [None]
